FAERS Safety Report 9070903 (Version 1)
Quarter: 2013Q1

REPORT INFORMATION
  Report Type: Spontaneous
  Country: US (occurrence: US)
  Receive Date: 20130206
  Receipt Date: 20130206
  Transmission Date: 20140127
  Serious: No
  Sender: FDA-Public Use
  Company Number: US-ALLERGAN-1206355US

PATIENT
  Sex: Female

DRUGS (6)
  1. RESTASIS? [Suspect]
     Indication: SJOGREN^S SYNDROME
     Dosage: 2 GTT, SINGLE
     Route: 047
     Dates: start: 20120502, end: 20120502
  2. PRED FORTE? [Concomitant]
     Indication: IRITIS
     Dosage: 1 GTT, QOD
     Route: 047
  3. FML FORTE? [Concomitant]
     Indication: IRITIS
     Dosage: 1 GTT, UNK
     Route: 047
     Dates: start: 20120429
  4. FML FORTE? [Concomitant]
     Indication: SJOGREN^S SYNDROME
  5. ATENOLOL [Concomitant]
     Indication: HYPERTENSION
     Dosage: UNK
     Route: 048
  6. ATIVAN [Concomitant]
     Indication: SEROTONIN SYNDROME
     Dosage: UNK
     Route: 048

REACTIONS (7)
  - Dyspnoea [Recovered/Resolved]
  - Tachycardia [Recovered/Resolved]
  - Muscle twitching [Recovered/Resolved]
  - Pruritus [Recovered/Resolved]
  - Lip swelling [Recovered/Resolved]
  - Swollen tongue [Recovered/Resolved]
  - Wheezing [Recovered/Resolved]
